FAERS Safety Report 6572182-7 (Version None)
Quarter: 2010Q1

REPORT INFORMATION
  Report Type: 
  Country: None (occurrence: None)
  Receive Date: 20100205
  Receipt Date: 20100129
  Transmission Date: 20100710
  Serious: Yes (Hospitalization)
  Sender: FDA-Public Use
  Company Number: B0631266A

PATIENT
  Age: 70 Year
  Sex: Female

DRUGS (15)
  1. CARVEDILOL [Suspect]
     Dosage: 12.5MG PER DAY
     Route: 048
     Dates: start: 20060101
  2. RESTEX [Suspect]
     Indication: RESTLESS LEGS SYNDROME
     Dosage: 125MG PER DAY
     Route: 048
     Dates: start: 20060101
  3. FENTANYL [Suspect]
     Indication: PAIN
     Dosage: 50UG TWENTY FOUR TIMES PER DAY
     Route: 062
     Dates: start: 20090601, end: 20090727
  4. BLOPRESS [Suspect]
     Dosage: 8MG PER DAY
     Route: 048
     Dates: start: 20070101
  5. OMEPRAZOL [Suspect]
     Dosage: 40MG PER DAY
     Route: 048
     Dates: start: 20050101
  6. CINACALCET HYDROCHLORIDE [Suspect]
     Indication: HYPERPARATHYROIDISM
     Dosage: 90MG THREE TIMES PER WEEK
     Route: 048
     Dates: start: 20060101
  7. NOVONORM [Suspect]
     Dosage: 2MG PER DAY
     Route: 048
     Dates: start: 20070101
  8. SIMVASTATIN [Suspect]
     Dosage: 10MG PER DAY
     Route: 048
     Dates: start: 20050101
  9. ACTONEL [Suspect]
     Indication: OSTEOPOROSIS
     Dosage: 35MG PER DAY
     Route: 048
     Dates: start: 20080101
  10. DREISAVIT [Concomitant]
     Route: 065
     Dates: start: 20050101, end: 20090726
  11. FOSRENOL [Concomitant]
     Route: 065
     Dates: start: 20070601
  12. MCP [Concomitant]
     Route: 065
     Dates: start: 20050101, end: 20090731
  13. ASPIRIN [Concomitant]
     Route: 065
     Dates: start: 20050101
  14. METAMIZOL [Concomitant]
     Route: 065
     Dates: start: 20090601
  15. DIGITOXIN INJ [Concomitant]
     Route: 065
     Dates: start: 20070601

REACTIONS (2)
  - SOMNOLENCE [None]
  - TRANSAMINASES INCREASED [None]
